FAERS Safety Report 10670135 (Version 3)
Quarter: 2015Q1

REPORT INFORMATION
  Report Type: Spontaneous
  Country: US (occurrence: US)
  Receive Date: 20141223
  Receipt Date: 20150123
  Transmission Date: 20150720
  Serious: Yes (Hospitalization)
  Sender: FDA-Public Use
  Company Number: US-BEH-2014047376

PATIENT
  Age: 8 Year
  Sex: Male

DRUGS (2)
  1. HIZENTRA [Suspect]
     Active Substance: HUMAN IMMUNOGLOBULIN G
     Dosage: STARTED SEP-2010; 8 GM DIVIDED INTO 4 GM EVERY 4 DAYS
  2. HIZENTRA [Suspect]
     Active Substance: HUMAN IMMUNOGLOBULIN G
     Dosage: 30-NOV-2014; 8 GM DIVIDED INTO 2 4 GM DOSES EVERY 4 DAYS

REACTIONS (4)
  - Influenza [Recovered/Resolved]
  - No adverse event [Unknown]
  - White blood cell count decreased [Recovered/Resolved]
  - Incorrect dose administered [Unknown]

NARRATIVE: CASE EVENT DATE: 20141127
